FAERS Safety Report 6573179-3 (Version None)
Quarter: 2010Q1

REPORT INFORMATION
  Report Type: 
  Country: None (occurrence: None)
  Receive Date: 20100208
  Receipt Date: 20100129
  Transmission Date: 20100710
  Serious: Yes (Other)
  Sender: FDA-Public Use
  Company Number: US-ASTRAZENECA-2007UW22900

PATIENT
  Age: 65 Year
  Sex: Female

DRUGS (4)
  1. ARIMIDEX [Suspect]
     Indication: BREAST CANCER RECURRENT
     Route: 048
  2. GLUCOPHAGE [Concomitant]
  3. COZAAR [Concomitant]
  4. AMYTRIPTILLINE [Concomitant]

REACTIONS (3)
  - CEREBROVASCULAR ACCIDENT [None]
  - MENTAL IMPAIRMENT [None]
  - TRANSIENT ISCHAEMIC ATTACK [None]
